FAERS Safety Report 7324225-0 (Version None)
Quarter: 2011Q1

REPORT INFORMATION
  Report Type: 
  Country: None (occurrence: None)
  Receive Date: 20110301
  Receipt Date: 20110217
  Transmission Date: 20110831
  Serious: Yes (Hospitalization, Other)
  Sender: FDA-Public Use
  Company Number: US-AMGEN-USASP2011008024

PATIENT
  Age: 49 Year
  Sex: Female
  Weight: 57.596 kg

DRUGS (8)
  1. LEXAPRO [Concomitant]
  2. FAMOTIDINE [Concomitant]
  3. OSCAL                              /00108001/ [Concomitant]
  4. NPLATE [Suspect]
     Indication: IDIOPATHIC THROMBOCYTOPENIC PURPURA
     Dosage: 232 A?G, QWK
     Route: 058
     Dates: start: 20100302, end: 20101104
  5. PREDNISONE [Concomitant]
  6. CORTICOSTEROIDS [Concomitant]
  7. LORTAB [Concomitant]
  8. ADVIL [Concomitant]

REACTIONS (5)
  - MOUTH HAEMORRHAGE [None]
  - THERAPEUTIC RESPONSE DECREASED [None]
  - BLOOD BLISTER [None]
  - PLATELET COUNT DECREASED [None]
  - PETECHIAE [None]
